FAERS Safety Report 8622879-X (Version None)
Quarter: 2012Q3

REPORT INFORMATION
  Report Type: 
  Country: None (occurrence: None)
  Receive Date: 20120813
  Receipt Date: 20120803
  Transmission Date: 20120928
  Serious: Yes (Other)
  Sender: FDA-Public Use
  Company Number: 2012SA056058

PATIENT
  Sex: Male

DRUGS (1)
  1. ICY HOT MEDICATED SPRAY [Suspect]
     Dates: start: 20120701

REACTIONS (2)
  - APPLICATION SITE BURN [None]
  - BURNS SECOND DEGREE [None]
